FAERS Safety Report 9902279 (Version 2)
Quarter: 2014Q1

REPORT INFORMATION
  Report Type: Spontaneous
  Country: JP (occurrence: JP)
  Receive Date: 20140217
  Receipt Date: 20140218
  Transmission Date: 20141002
  Serious: Yes (Other)
  Sender: FDA-Public Use
  Company Number: JP-JNJFOC-20140209026

PATIENT
  Age: 51 Year
  Sex: Male
  Weight: 64 kg

DRUGS (17)
  1. REMICADE [Suspect]
     Indication: COLITIS ULCERATIVE
     Route: 042
     Dates: start: 20110607
  2. REMICADE [Suspect]
     Indication: COLITIS ULCERATIVE
     Route: 042
     Dates: start: 20110708
  3. REMICADE [Suspect]
     Indication: COLITIS ULCERATIVE
     Route: 042
     Dates: start: 20110909
  4. REMICADE [Suspect]
     Indication: COLITIS ULCERATIVE
     Route: 042
     Dates: start: 20111104
  5. REMICADE [Suspect]
     Indication: COLITIS ULCERATIVE
     Route: 042
     Dates: start: 20120106
  6. REMICADE [Suspect]
     Indication: COLITIS ULCERATIVE
     Dosage: 7TH DOSE
     Route: 042
     Dates: start: 20120302
  7. REMICADE [Suspect]
     Indication: COLITIS ULCERATIVE
     Dosage: 8TH DOSE
     Route: 042
     Dates: start: 20120420
  8. REMICADE [Suspect]
     Indication: COLITIS ULCERATIVE
     Route: 042
     Dates: start: 20120615
  9. REMICADE [Suspect]
     Indication: COLITIS ULCERATIVE
     Route: 042
     Dates: start: 20110524
  10. RINDERON [Concomitant]
     Indication: COLITIS ULCERATIVE
     Route: 065
     Dates: start: 20110502, end: 20110509
  11. IMURAN [Concomitant]
     Indication: COLITIS ULCERATIVE
     Route: 048
     Dates: start: 20110509
  12. CELECOX [Concomitant]
     Indication: ARTHRITIS
     Route: 048
     Dates: start: 20110601
  13. MUCOSTA [Concomitant]
     Indication: COLITIS ULCERATIVE
     Route: 065
     Dates: start: 20110615
  14. GASTROM GRANULES [Concomitant]
     Indication: COLITIS ULCERATIVE
     Route: 065
     Dates: start: 20110615
  15. LAC-B [Concomitant]
     Indication: COLITIS ULCERATIVE
     Route: 048
  16. ASACOL [Concomitant]
     Indication: COLITIS ULCERATIVE
     Route: 048
     Dates: start: 20110520
  17. CODEINE PHOSPHATE [Concomitant]
     Indication: COLITIS ULCERATIVE
     Route: 048
     Dates: start: 20111104

REACTIONS (1)
  - Cholelithiasis [Recovered/Resolved]
